FAERS Safety Report 25807381 (Version 1)
Quarter: 2025Q3

REPORT INFORMATION
  Report Type: Spontaneous
  Country: US (occurrence: US)
  Receive Date: 20250916
  Receipt Date: 20250916
  Transmission Date: 20251020
  Serious: Yes (Other)
  Sender: BAYER HEALTHCARE PHARMACEUTICALS INC.
  Company Number: US-BAYER-2025A121202

PATIENT
  Age: 27 Year
  Sex: Female

DRUGS (1)
  1. KYLEENA [Suspect]
     Active Substance: LEVONORGESTREL
     Dosage: 17.5?G/DAY
     Route: 015
     Dates: start: 20250501

REACTIONS (3)
  - Pregnancy with contraceptive device [None]
  - Contraindicated device used [None]
  - Medical device monitoring error [None]

NARRATIVE: CASE EVENT DATE: 20250101
